FAERS Safety Report 25687864 (Version 1)
Quarter: 2025Q3

REPORT INFORMATION
  Report Type: Report from Study
  Country: EU (occurrence: EU)
  Receive Date: 20250817
  Receipt Date: 20250817
  Transmission Date: 20251021
  Serious: Yes (Hospitalization, Other)
  Sender: ABBVIE
  Company Number: EU-ABBVIE-6412156

PATIENT
  Age: 63 Year
  Sex: Female

DRUGS (8)
  1. CARBIDOPA\LEVODOPA [Suspect]
     Active Substance: CARBIDOPA\LEVODOPA
     Indication: Parkinson^s disease
     Route: 050
     Dates: start: 20150127
  2. CARBIDOPA\LEVODOPA [Suspect]
     Active Substance: CARBIDOPA\LEVODOPA
  3. MEMANTINE HYDROCHLORIDE [Concomitant]
     Active Substance: MEMANTINE HYDROCHLORIDE
     Indication: Dementia
     Dosage: 10 MILLIGRAM
     Route: 048
  4. DOMPERIDONE [Concomitant]
     Active Substance: DOMPERIDONE
     Indication: Gastrointestinal hypermotility
     Route: 048
     Dates: start: 20250722, end: 20250726
  5. VENLAFAXINE [Concomitant]
     Active Substance: VENLAFAXINE HYDROCHLORIDE
     Indication: Depression
     Dosage: FORM STRENGTH: 10 MILLIGRAM
     Route: 048
  6. ASPIRIN [Concomitant]
     Active Substance: ASPIRIN
     Indication: Prophylaxis
     Dosage: 100 MILLIGRAM
     Route: 048
  7. CARBIDOPA, LEVODOPA AND ENTACAPONE [Concomitant]
     Active Substance: CARBIDOPA\ENTACAPONE\LEVODOPA
     Indication: Parkinson^s disease
     Route: 048
  8. PALIPERIDONE [Concomitant]
     Active Substance: PALIPERIDONE
     Indication: Dementia
     Dosage: 10 MILLIGRAM
     Route: 048
     Dates: start: 202105

REACTIONS (15)
  - Gastrointestinal motility disorder [Recovered/Resolved]
  - Abdominal pain [Recovered/Resolved]
  - Pylorus dilatation [Recovered/Resolved]
  - Intestinal dilatation [Recovered/Resolved]
  - Stoma site discharge [Recovered/Resolved]
  - Nausea [Recovered/Resolved]
  - Hypertensive crisis [Unknown]
  - Hospitalisation [Unknown]
  - Muscular weakness [Unknown]
  - Transient ischaemic attack [Unknown]
  - Femoral neck fracture [Unknown]
  - Depressed level of consciousness [Unknown]
  - Pylorus dilatation [Recovered/Resolved]
  - Pylorus dilatation [Recovered/Resolved]
  - Pylorus dilatation [Recovered/Resolved]

NARRATIVE: CASE EVENT DATE: 20190215
